FAERS Safety Report 6403533-1 (Version None)
Quarter: 2009Q4

REPORT INFORMATION
  Report Type: 
  Country: None (occurrence: None)
  Receive Date: 20091016
  Receipt Date: 20091007
  Transmission Date: 20100525
  Serious: Yes (Other)
  Sender: FDA-Public Use
  Company Number: US-NOVOPROD-292591

PATIENT
  Sex: Female

DRUGS (1)
  1. NOVOLOG MIX 70/30 [Suspect]
     Indication: TYPE 1 DIABETES MELLITUS
     Dosage: 20 U, BID
     Route: 058
     Dates: start: 20070101, end: 20090901

REACTIONS (8)
  - ALOPECIA [None]
  - BREAST ENLARGEMENT [None]
  - DIARRHOEA [None]
  - HAIR GROWTH ABNORMAL [None]
  - SKIN CANCER [None]
  - SPEECH DISORDER [None]
  - VISUAL ACUITY REDUCED [None]
  - WEIGHT DECREASED [None]
